FAERS Safety Report 20577784 (Version 1)
Quarter: 2022Q1

REPORT INFORMATION
  Report Type: Spontaneous
  Country: US (occurrence: US)
  Receive Date: 20220310
  Receipt Date: 20220310
  Transmission Date: 20220424
  Serious: No
  Sender: FDA-Public Use
  Company Number: US-TEVA-2022-US-2008402

PATIENT

DRUGS (1)
  1. PHENTERMINE [Suspect]
     Active Substance: PHENTERMINE
     Route: 065

REACTIONS (2)
  - Tachycardia [Unknown]
  - Night sweats [Unknown]
